FAERS Safety Report 16940601 (Version 1)
Quarter: 2019Q4

REPORT INFORMATION
  Report Type: Spontaneous
  Country: US (occurrence: US)
  Receive Date: 20191021
  Receipt Date: 20191021
  Transmission Date: 20200122
  Serious: No
  Sender: FDA-Public Use
  Company Number: US-VERTEX PHARMACEUTICALS-2019-010074

PATIENT
  Age: 55 Year
  Sex: Male

DRUGS (17)
  1. PROAIR HFA [Concomitant]
     Active Substance: ALBUTEROL SULFATE
     Dosage: UNK
     Dates: start: 20181109
  2. AMLODIPINE [Concomitant]
     Active Substance: AMLODIPINE BESYLATE
     Dosage: 5 MG
     Dates: start: 20181109
  3. CREON [Concomitant]
     Active Substance: PANCRELIPASE AMYLASE\PANCRELIPASE LIPASE\PANCRELIPASE PROTEASE
     Dosage: 36000 IU INTERNATIONAL UNIT(S)
     Dates: start: 20181109
  4. MINOCIN [Concomitant]
     Active Substance: MINOCYCLINE HYDROCHLORIDE
     Dosage: 100 MG
     Dates: start: 20181109
  5. LISINOPRIL. [Concomitant]
     Active Substance: LISINOPRIL
     Dosage: 20 MG
     Dates: start: 20181109
  6. TOBRAMYCIN. [Concomitant]
     Active Substance: TOBRAMYCIN
     Dosage: 40 MG/ML
     Dates: start: 20181109
  7. NOVOLOG [Concomitant]
     Active Substance: INSULIN ASPART
     Dosage: FLEXPEN
     Dates: start: 20181109
  8. ALBUTEROL [SALBUTAMOL] [Concomitant]
     Active Substance: ALBUTEROL
     Dosage: 0.83 MG NEB
     Dates: start: 20181109
  9. SYMDEKO [Suspect]
     Active Substance: IVACAFTOR\TEZACAFTOR
     Indication: CYSTIC FIBROSIS
     Dosage: TEZACAFTOR 100MG/IVACAFTOR 150MG AM; IVACAFTOR 150MG PM
     Route: 048
     Dates: start: 20180718
  10. SODIUM CHLORIDE. [Concomitant]
     Active Substance: SODIUM CHLORIDE
     Dosage: 3 % NEB
     Dates: start: 20181109
  11. OMEPRAZOLE. [Concomitant]
     Active Substance: OMEPRAZOLE
     Dosage: 20 MG
     Dates: start: 20181109
  12. CHLORTHALIDON [Concomitant]
     Active Substance: CHLORTHALIDONE
     Dosage: 25 MG
     Dates: start: 20170926
  13. CHLORTHALIDON [Concomitant]
     Active Substance: CHLORTHALIDONE
     Dosage: 25 MG
     Dates: start: 20181109
  14. LANTUS [Concomitant]
     Active Substance: INSULIN GLARGINE
     Dosage: SOLOSTAR
     Dates: start: 20181109
  15. GABAPENTIN. [Concomitant]
     Active Substance: GABAPENTIN
     Dosage: 500 MG
     Dates: start: 20170831
  16. DOXYCYCLINE. [Concomitant]
     Active Substance: DOXYCYCLINE
     Dosage: 150 MG
     Dates: start: 20161109
  17. ALLOPURINOL. [Concomitant]
     Active Substance: ALLOPURINOL
     Dosage: 300 MG
     Dates: start: 20181109

REACTIONS (1)
  - Nasopharyngitis [Recovered/Resolved]

NARRATIVE: CASE EVENT DATE: 201909
